FAERS Safety Report 10817717 (Version 3)
Quarter: 2015Q1

REPORT INFORMATION
  Report Type: Spontaneous
  Country: US (occurrence: US)
  Receive Date: 20150218
  Receipt Date: 20150331
  Transmission Date: 20150721
  Serious: Yes (Other)
  Sender: FDA-Public Use
  Company Number: US-SHIRE-US201501330

PATIENT
  Age: 5 Year
  Sex: Male
  Weight: 17.69 kg

DRUGS (2)
  1. VYVANSE [Suspect]
     Active Substance: LISDEXAMFETAMINE DIMESYLATE
     Indication: ATTENTION DEFICIT/HYPERACTIVITY DISORDER
     Dosage: 30 MG, 1X/DAY:QD
     Route: 048
     Dates: start: 201309, end: 201408
  2. VYVANSE [Suspect]
     Active Substance: LISDEXAMFETAMINE DIMESYLATE
     Dosage: 40 MG, 1X/DAY:QD
     Route: 048
     Dates: start: 201408

REACTIONS (10)
  - Insomnia [Recovered/Resolved]
  - Product use issue [Recovered/Resolved]
  - Abnormal behaviour [Recovered/Resolved]
  - Drug effect variable [Recovered/Resolved]
  - Drug withdrawal syndrome [Recovered/Resolved]
  - Disturbance in social behaviour [Recovered/Resolved]
  - Product quality issue [Unknown]
  - Depression [Recovered/Resolved]
  - Weight gain poor [Unknown]
  - Drug ineffective [Recovered/Resolved]

NARRATIVE: CASE EVENT DATE: 201309
